FAERS Safety Report 4896600-5 (Version None)
Quarter: 2005Q4

REPORT INFORMATION
  Report Type: 
  Country: None (occurrence: None)
  Receive Date: 20051223
  Receipt Date: 20051102
  Transmission Date: 20060501
  Serious: No
  Sender: FDA-Public Use
  Company Number: 05P-163-0316162-00

PATIENT
  Age: 51 Year
  Sex: Female
  Weight: 96 kg

DRUGS (11)
  1. HUMIRA [Suspect]
     Indication: RHEUMATOID ARTHRITIS
     Dosage: 40 MG, 1 IN 2 WK, SUBCUTANEOUS
     Route: 058
     Dates: start: 20050713
  2. TRAMADOL [Concomitant]
  3. FENTANYL [Concomitant]
  4. METHOCARBAMOL [Concomitant]
  5. IBUPROFEN [Concomitant]
  6. RANITIDINE HCL [Concomitant]
  7. LISINOPRIL [Concomitant]
  8. MEDROXYPROGESTERONE [Concomitant]
  9. HYDROXYCHLOROQUINE SULFATE [Concomitant]
  10. HYDROXYZINE EMBONATE [Concomitant]
  11. METFORMIN [Concomitant]

REACTIONS (1)
  - OEDEMA PERIPHERAL [None]
